FAERS Safety Report 5739854-5 (Version None)
Quarter: 2008Q2

REPORT INFORMATION
  Report Type: 
  Country: None (occurrence: None)
  Receive Date: 20080513
  Receipt Date: 20080513
  Transmission Date: 20081010
  Serious: Yes (Other)
  Sender: FDA-Public Use
  Company Number: None

PATIENT
  Age: 29 Year
  Sex: Female
  Weight: 97.5234 kg

DRUGS (2)
  1. ADIPEX-P [Suspect]
     Indication: WEIGHT CONTROL
     Dosage: 1 PILL ONCE A DAY
     Dates: start: 20080317, end: 20080511
  2. FLONASE [Suspect]
     Indication: MULTIPLE ALLERGIES
     Dosage: ONE SPRAY PER NOSE ONCE PER DAY INHAL
     Route: 055
     Dates: start: 20080427, end: 20080511

REACTIONS (2)
  - FEELING ABNORMAL [None]
  - TRANSIENT ISCHAEMIC ATTACK [None]
